FAERS Safety Report 8068693-8 (Version None)
Quarter: 2012Q1

REPORT INFORMATION
  Report Type: 
  Country: None (occurrence: None)
  Receive Date: 20120124
  Receipt Date: 20111117
  Transmission Date: 20120608
  Serious: No
  Sender: FDA-Public Use
  Company Number: US-AMGEN-USASP2011060707

PATIENT
  Age: 78 Year
  Sex: Female

DRUGS (2)
  1. CRESTOR [Concomitant]
     Dates: start: 20111101
  2. PROLIA [Suspect]
     Indication: OSTEOPOROSIS POSTMENOPAUSAL
     Dosage: 6 MG, Q6MO

REACTIONS (3)
  - DYSGEUSIA [None]
  - DIABETES MELLITUS [None]
  - ORAL DISCOMFORT [None]
